FAERS Safety Report 16330974 (Version 1)
Quarter: 2019Q2

REPORT INFORMATION
  Report Type: Spontaneous
  Country: US (occurrence: US)
  Receive Date: 20190517
  Receipt Date: 20190517
  Transmission Date: 20190711
  Serious: Yes (Hospitalization)
  Sender: FDA-Public Use
  Company Number: None

PATIENT
  Age: 65 Year
  Sex: Female

DRUGS (20)
  1. BACLOFEN. [Concomitant]
     Active Substance: BACLOFEN
     Dates: start: 20190222
  2. PEPTO-BISMOL [Concomitant]
     Active Substance: BISMUTH SUBSALICYLATE
     Dates: start: 20170511
  3. ROSUVASTATIN. [Concomitant]
     Active Substance: ROSUVASTATIN
     Dates: start: 20190105
  4. GABAPENTIN. [Concomitant]
     Active Substance: GABAPENTIN
     Dates: start: 20190408
  5. BUPROPN HCL [Concomitant]
     Active Substance: BUPROPION HYDROCHLORIDE
     Dates: start: 20110224
  6. CRESTOR [Concomitant]
     Active Substance: ROSUVASTATIN CALCIUM
     Dates: start: 20110304
  7. ALPRAZOLAM. [Concomitant]
     Active Substance: ALPRAZOLAM
     Dates: start: 20190514
  8. DEXTROAMPHET SACCHARAT, AMPHET ASPARTATE, DEXTROAMPHET SULFATE AND AMPHET SULFAT [Concomitant]
     Active Substance: AMPHETAMINE ASPARTATE\AMPHETAMINE SULFATE\DEXTROAMPHETAMINE SACCHARATE\DEXTROAMPHETAMINE SULFATE
     Dates: start: 20190504
  9. LISINOPRIL. [Concomitant]
     Active Substance: LISINOPRIL
     Dates: start: 20190328
  10. PREMARIN [Concomitant]
     Active Substance: ESTROGENS, CONJUGATED
     Dates: start: 20000626
  11. PROVIGIL [Concomitant]
     Active Substance: MODAFINIL
     Dates: start: 20110224
  12. GLATIRAMER [Suspect]
     Active Substance: GLATIRAMER
     Indication: MULTIPLE SCLEROSIS
     Dosage: ?          OTHER FREQUENCY:3TIMES PER WEEK;?
     Route: 058
     Dates: start: 20190226
  13. AMLODIPINE [Concomitant]
     Active Substance: AMLODIPINE BESYLATE
     Dates: start: 20190428
  14. MODAFINIL. [Concomitant]
     Active Substance: MODAFINIL
     Dates: start: 20190319
  15. TUMS [Concomitant]
     Active Substance: CALCIUM CARBONATE
     Dates: start: 20170511
  16. BUT/APAP/CAF [Concomitant]
     Dates: start: 20190514
  17. VENTOLIN [Concomitant]
     Active Substance: ALBUTEROL SULFATE
     Dates: start: 20110308
  18. ZANTAC [Concomitant]
     Active Substance: RANITIDINE HYDROCHLORIDE
     Dates: start: 20170511
  19. CLONAZEPAM. [Concomitant]
     Active Substance: CLONAZEPAM
     Dates: start: 20190212
  20. FLUOXETINE [Concomitant]
     Active Substance: FLUOXETINE HYDROCHLORIDE
     Dates: start: 20190128

REACTIONS (2)
  - Insomnia [None]
  - Dyspnoea [None]
